FAERS Safety Report 14101218 (Version 2)
Quarter: 2017Q4

REPORT INFORMATION
  Report Type: Spontaneous
  Country: US (occurrence: US)
  Receive Date: 20171018
  Receipt Date: 20171127
  Transmission Date: 20180321
  Serious: No
  Sender: FDA-Public Use
  Company Number: US-ASTRAZENECA-2017SF05970

PATIENT
  Age: 33 Year
  Sex: Female
  Weight: 61 kg

DRUGS (3)
  1. TYLENOL [Concomitant]
     Active Substance: ACETAMINOPHEN
     Indication: HEADACHE
     Dosage: 200MG CAPSULE AS NEEDED
     Dates: start: 2017
  2. IBUPROFEN. [Concomitant]
     Active Substance: IBUPROFEN
     Indication: HEADACHE
     Dosage: 200MG TABLET AS NEEDED
     Dates: start: 2017
  3. NEXIUM 24HR [Suspect]
     Active Substance: ESOMEPRAZOLE MAGNESIUM
     Indication: GASTRIC DISORDER
     Route: 048

REACTIONS (4)
  - Ageusia [Not Recovered/Not Resolved]
  - Hypoaesthesia oral [Not Recovered/Not Resolved]
  - Poor quality drug administered [Unknown]
  - Product quality issue [Unknown]

NARRATIVE: CASE EVENT DATE: 20171009
